FAERS Safety Report 9687837 (Version 2)
Quarter: 2013Q4

REPORT INFORMATION
  Report Type: Spontaneous
  Country: US (occurrence: US)
  Receive Date: 20131114
  Receipt Date: 20131223
  Transmission Date: 20140711
  Serious: Yes (Other)
  Sender: FDA-Public Use
  Company Number: US-AMGEN-USASP2013079043

PATIENT
  Age: 88 Year
  Sex: Female
  Weight: 54.42 kg

DRUGS (3)
  1. PROLIA [Suspect]
     Indication: OSTEOPOROSIS
     Dosage: UNK
     Route: 058
     Dates: start: 20121129
  2. ASPIRIN [Concomitant]
     Dosage: 81 MG, QD
     Route: 048
  3. PROTONIX [Concomitant]
     Dosage: 40 MG, QD
     Route: 048

REACTIONS (2)
  - Oral infection [Unknown]
  - Tooth infection [Not Recovered/Not Resolved]
